FAERS Safety Report 11766869 (Version 2)
Quarter: 2016Q4

REPORT INFORMATION
  Report Type: Spontaneous
  Country: US (occurrence: US)
  Receive Date: 20151123
  Receipt Date: 20161114
  Transmission Date: 20170206
  Serious: No
  Sender: FDA-Public Use
  Company Number: US-PAR PHARMACEUTICAL, INC-2015SCPR014291

PATIENT

DRUGS (3)
  1. ACCOLATE [Suspect]
     Active Substance: ZAFIRLUKAST
     Indication: HYPERSENSITIVITY
     Dosage: 10 MG, BID
     Route: 048
  2. OXYGEN. [Concomitant]
     Active Substance: OXYGEN
     Indication: PRODUCT USED FOR UNKNOWN INDICATION
     Dosage: 24 HOURS/DAY
     Route: 065
  3. TUDORZA PRESSAIR [Suspect]
     Active Substance: ACLIDINIUM BROMIDE
     Indication: EMPHYSEMA
     Dosage: 400 MCG, BID
     Route: 055
     Dates: start: 20150912

REACTIONS (6)
  - Product use issue [Unknown]
  - Malaise [Unknown]
  - Activities of daily living impaired [Not Recovered/Not Resolved]
  - Underweight [Recovering/Resolving]
  - Adverse event [Unknown]
  - Sensitivity to weather change [Not Recovered/Not Resolved]
